FAERS Safety Report 21160011 (Version 1)
Quarter: 2022Q3

REPORT INFORMATION
  Report Type: Spontaneous
  Country: FR (occurrence: FR)
  Receive Date: 20220802
  Receipt Date: 20220802
  Transmission Date: 20221026
  Serious: Yes (Other)
  Sender: FDA-Public Use
  Company Number: None

PATIENT
  Age: 70 Year
  Sex: Male
  Weight: 76.45 kg

DRUGS (10)
  1. FENOFIBRATE [Suspect]
     Active Substance: FENOFIBRATE
     Indication: Hyperlipidaemia
     Dosage: 160 MG, QD
     Route: 048
     Dates: start: 20210824, end: 20210927
  2. FENOFIBRATE [Suspect]
     Active Substance: FENOFIBRATE
     Dosage: 300 MG, QD
     Route: 048
     Dates: start: 20210928, end: 20211026
  3. ATORVASTATIN [Suspect]
     Active Substance: ATORVASTATIN
     Indication: Product used for unknown indication
     Dosage: 10 MG, QD
     Route: 048
     Dates: end: 20211026
  4. TARGRETIN [Suspect]
     Active Substance: BEXAROTENE
     Indication: Cutaneous T-cell lymphoma
     Dosage: 300 MG, QD (SOIT 4 COMPRIMES A 75 MG PAR JOUR)
     Route: 048
     Dates: start: 20210824, end: 20210927
  5. TARGRETIN [Suspect]
     Active Substance: BEXAROTENE
     Dosage: 375 MG, QD (SOIT 5 COMPRIMES A 75 MG PAR JOUR)
     Route: 048
     Dates: start: 20210928, end: 20211012
  6. TARGRETIN [Suspect]
     Active Substance: BEXAROTENE
     Dosage: 300 MG, QD (SOIT 4 COMPRIMES A 75 MG PAR JOUR)
     Route: 048
     Dates: start: 20211013, end: 20211026
  7. BISOPROLOL [Concomitant]
     Active Substance: BISOPROLOL
     Indication: Atrial fibrillation
     Dosage: 1.25 MG, QD
     Route: 048
  8. MOGAMULIZUMAB [Concomitant]
     Active Substance: MOGAMULIZUMAB
     Indication: Cutaneous T-cell lymphoma
     Dosage: UNK
     Route: 042
     Dates: start: 20210211
  9. XARELTO [Concomitant]
     Active Substance: RIVAROXABAN
     Indication: Atrial fibrillation
     Dosage: UNK, QD
     Route: 048
  10. LEVOTHYROXINE [Concomitant]
     Active Substance: LEVOTHYROXINE
     Indication: Hypothyroidism
     Dosage: 75 UG, QD
     Route: 048

REACTIONS (2)
  - Hepatic cytolysis [Recovered/Resolved]
  - Gamma-glutamyltransferase increased [Recovered/Resolved]

NARRATIVE: CASE EVENT DATE: 20211022
